FAERS Safety Report 24955458 (Version 1)
Quarter: 2025Q1

REPORT INFORMATION
  Report Type: Spontaneous
  Country: US (occurrence: None)
  Receive Date: 20250210
  Receipt Date: 20250210
  Transmission Date: 20250408
  Serious: Yes (Other)
  Sender: FDA-CTU
  Company Number: None

PATIENT
  Age: 36 Year
  Sex: Female
  Weight: 90.9 kg

DRUGS (2)
  1. OPZELURA [Suspect]
     Active Substance: RUXOLITINIB PHOSPHATE
     Indication: Alopecia
     Dosage: OTHER QUANTITY : 5 CREAM;?FREQUENCY : TWICE A DAY;?OTHER ROUTE : SCALP;?
     Route: 050
  2. QUETIAPINE [Concomitant]
     Active Substance: QUETIAPINE

REACTIONS (2)
  - Condition aggravated [None]
  - Adverse drug reaction [None]

NARRATIVE: CASE EVENT DATE: 20250131
